FAERS Safety Report 5914187-2 (Version None)
Quarter: 2008Q4

REPORT INFORMATION
  Report Type: 
  Country: None (occurrence: None)
  Receive Date: 20081009
  Receipt Date: 20080930
  Transmission Date: 20090506
  Serious: Yes (Hospitalization)
  Sender: FDA-Public Use
  Company Number: AU-ELI_LILLY_AND_COMPANY-AU200809006527

PATIENT
  Sex: Female

DRUGS (5)
  1. OLANZAPINE [Suspect]
     Indication: SCHIZOPHRENIA
     Dosage: 15 MG, DAILY (1/D)
     Dates: start: 20070531, end: 20080604
  2. OLANZAPINE [Suspect]
     Dosage: 10 MG, DAILY (1/D)
     Dates: start: 20080605
  3. DIAZEPAM [Concomitant]
     Indication: ANXIETY
     Dosage: 10 MG, DAILY (1/D)
     Dates: start: 20080518
  4. EFFEXOR XR [Concomitant]
     Indication: DEPRESSION
     Dosage: 75 MG, DAILY (1/D)
     Dates: start: 20070919
  5. VALPROATE SODIUM [Concomitant]
     Indication: AFFECTIVE DISORDER
     Dosage: 1000 MG, DAILY (1/D)
     Dates: start: 20070524

REACTIONS (5)
  - ASTHMA [None]
  - BRONCHIAL OBSTRUCTION [None]
  - BRONCHITIS [None]
  - COUGH [None]
  - URTICARIA [None]
